FAERS Safety Report 14816647 (Version 1)
Quarter: 2018Q2

REPORT INFORMATION
  Report Type: Spontaneous
  Country: US (occurrence: US)
  Receive Date: 20180426
  Receipt Date: 20180426
  Transmission Date: 20180711
  Serious: Yes (Death, Hospitalization, Other)
  Sender: FDA-Public Use
  Company Number: US-TEVA-2018-US-884237

PATIENT

DRUGS (1)
  1. ZOLPIDEM [Suspect]
     Active Substance: ZOLPIDEM\ZOLPIDEM TARTRATE
     Route: 065

REACTIONS (9)
  - Neoplasm malignant [Unknown]
  - Infection [Fatal]
  - Fall [Unknown]
  - Death [Fatal]
  - Depression [Unknown]
  - Completed suicide [Unknown]
  - Immune system disorder [Unknown]
  - Road traffic accident [Unknown]
  - Injury [Unknown]
